FAERS Safety Report 7590156-4 (Version None)
Quarter: 2011Q3

REPORT INFORMATION
  Report Type: 
  Country: None (occurrence: None)
  Receive Date: 20110705
  Receipt Date: 20110615
  Transmission Date: 20111222
  Serious: Yes (Other)
  Sender: FDA-Public Use
  Company Number: D0071751A

PATIENT
  Age: 70 Year
  Sex: Male

DRUGS (1)
  1. ATMADISC FORTE [Suspect]
     Route: 055
     Dates: start: 20060101

REACTIONS (3)
  - CANDIDIASIS [None]
  - URETERIC STENOSIS [None]
  - STOMATITIS [None]
